FAERS Safety Report 25559801 (Version 1)
Quarter: 2025Q3

REPORT INFORMATION
  Report Type: Spontaneous
  Country: US (occurrence: US)
  Receive Date: 20250715
  Receipt Date: 20250715
  Transmission Date: 20251020
  Serious: No
  Sender: NOVO NORDISK
  Company Number: US-NOVOPROD-1420757

PATIENT
  Sex: Male

DRUGS (2)
  1. OZEMPIC [Suspect]
     Active Substance: SEMAGLUTIDE
     Indication: Type 2 diabetes mellitus
     Dosage: 0.25 MG, QW
  2. TRESIBA [Concomitant]
     Active Substance: INSULIN DEGLUDEC

REACTIONS (3)
  - Feeling abnormal [Recovered/Resolved]
  - Abdominal discomfort [Recovered/Resolved]
  - Dyspepsia [Recovered/Resolved]
